FAERS Safety Report 8739328 (Version 2)
Quarter: 2012Q4

REPORT INFORMATION
  Report Type: 
  Country: US (occurrence: US)
  Receive Date: 20120823
  Receipt Date: 20121106
  Transmission Date: 20130627
  Serious: Yes (Other)
  Sender: FDA-Public Use
  Company Number: US-BAYER-2012-086520

PATIENT
  Age: 37 Year
  Sex: Female

DRUGS (4)
  1. MIRENA [Suspect]
     Indication: CONTRACEPTION
     Dosage: 20 mcg/24hr, CONT
     Route: 015
     Dates: start: 20100831, end: 20120821
  2. MIRENA [Suspect]
     Indication: BLEEDING MENSTRUAL HEAVY
  3. ZOCOR [Concomitant]
     Dosage: 20 mg, QD
  4. ZYRTEC [Concomitant]
     Dosage: UNK UNK, QD

REACTIONS (1)
  - Device dislocation [Recovered/Resolved]
